FAERS Safety Report 6064078-4 (Version None)
Quarter: 2009Q1

REPORT INFORMATION
  Report Type: 
  Country: None (occurrence: None)
  Receive Date: 20090204
  Receipt Date: 20090126
  Transmission Date: 20090719
  Serious: Yes (Death, Hospitalization, Other)
  Sender: FDA-Public Use
  Company Number: US-BIOGENIDEC-2008BI031755

PATIENT
  Sex: Female

DRUGS (1)
  1. TYSABRI [Suspect]
     Indication: MULTIPLE SCLEROSIS
     Route: 042
     Dates: start: 20071126, end: 20080904

REACTIONS (6)
  - CYSTITIS [None]
  - DEATH [None]
  - DELIRIUM [None]
  - MULTIPLE SCLEROSIS [None]
  - PAIN [None]
  - RENAL FAILURE [None]
